FAERS Safety Report 10247034 (Version 1)
Quarter: 2014Q2

REPORT INFORMATION
  Report Type: Spontaneous
  Country: US (occurrence: None)
  Receive Date: 20140617
  Receipt Date: 20140617
  Transmission Date: 20141212
  Serious: No
  Sender: FDA-Public Use
  Company Number: None

PATIENT
  Age: 69 Year
  Sex: Female
  Weight: 62 kg

DRUGS (7)
  1. FORTEO [Suspect]
     Route: 058
  2. ADVIL [Concomitant]
  3. METHOTREXATE [Concomitant]
  4. PEPCID [Concomitant]
  5. GABAPENTIN [Concomitant]
  6. CARTEOLOL [Concomitant]
  7. FOLIC ACID [Concomitant]

REACTIONS (3)
  - Osteoporosis [None]
  - Hypercalcaemia [None]
  - High turnover osteopathy [None]
